FAERS Safety Report 13664242 (Version 1)
Quarter: 2017Q2

REPORT INFORMATION
  Report Type: Spontaneous
  Country: US (occurrence: US)
  Receive Date: 20170619
  Receipt Date: 20170619
  Transmission Date: 20170830
  Serious: Yes (Hospitalization)
  Sender: FDA-Public Use
  Company Number: US-DRREDDYS-USA/USA/17/0091425

PATIENT
  Age: 58 Year
  Sex: Female

DRUGS (3)
  1. BUSPIRONE [Interacting]
     Active Substance: BUSPIRONE HYDROCHLORIDE
     Indication: PRODUCT USED FOR UNKNOWN INDICATION
     Route: 065
  2. CLOZAPINE. [Interacting]
     Active Substance: CLOZAPINE
     Indication: SCHIZOPHRENIA
     Route: 065
  3. DIVALPROEX SODIUM. [Suspect]
     Active Substance: DIVALPROEX SODIUM
     Indication: PRODUCT USED FOR UNKNOWN INDICATION
     Route: 065

REACTIONS (4)
  - Drug interaction [Unknown]
  - Somnolence [Unknown]
  - Pneumonia [Unknown]
  - Drug level increased [Unknown]
